FAERS Safety Report 17563898 (Version 1)
Quarter: 2020Q1

REPORT INFORMATION
  Report Type: Spontaneous
  Country: US (occurrence: US)
  Receive Date: 20200313
  Receipt Date: 20200313
  Transmission Date: 20200409
  Serious: No
  Sender: FDA-Public Use
  Company Number: None

PATIENT
  Age: 56 Year
  Sex: Female

DRUGS (1)
  1. IMATINIB MES TAB 100MG [Suspect]
     Active Substance: IMATINIB MESYLATE
     Route: 048
     Dates: start: 20200131

REACTIONS (5)
  - Thrombosis [None]
  - Disease progression [None]
  - Nausea [None]
  - Dehydration [None]
  - Swelling [None]

NARRATIVE: CASE EVENT DATE: 20200313
